FAERS Safety Report 7601855-X (Version None)
Quarter: 2011Q3

REPORT INFORMATION
  Report Type: 
  Country: None (occurrence: None)
  Receive Date: 20110711
  Receipt Date: 20110705
  Transmission Date: 20111222
  Serious: No
  Sender: FDA-Public Use
  Company Number: US-PFIZER INC-2011150289

PATIENT
  Sex: Female
  Weight: 81.6 kg

DRUGS (6)
  1. XANAX [Concomitant]
     Indication: ANXIETY
     Dosage: 0.5 MG, 1X/DAY
     Route: 048
  2. PREMARIN [Suspect]
     Indication: OFF LABEL USE
     Dosage: 0.5 G, 2X/WEEK
     Route: 067
     Dates: start: 20090101
  3. XANAX [Concomitant]
     Indication: SLEEP DISORDER
  4. PREVACID [Concomitant]
     Indication: GASTROOESOPHAGEAL REFLUX DISEASE
     Dosage: UNK
  5. PREMARIN [Suspect]
     Indication: BLADDER OPERATION
     Dosage: 0.5 G, WEEKLY
     Route: 067
     Dates: end: 20110601
  6. ZYRTEC [Concomitant]
     Dosage: UNK
     Route: 048

REACTIONS (2)
  - VULVOVAGINAL DISCOMFORT [None]
  - INAPPROPRIATE SCHEDULE OF DRUG ADMINISTRATION [None]
